FAERS Safety Report 17753367 (Version 3)
Quarter: 2020Q2

REPORT INFORMATION
  Report Type: Spontaneous
  Country: ES (occurrence: ES)
  Receive Date: 20200507
  Receipt Date: 20200522
  Transmission Date: 20200714
  Serious: Yes (Hospitalization, Other)
  Sender: FDA-Public Use
  Company Number: ES-AUROBINDO-AUR-APL-2020-021688

PATIENT
  Age: 78 Year
  Sex: Female
  Weight: 60 kg

DRUGS (12)
  1. AVELUMAB [Suspect]
     Active Substance: AVELUMAB
     Indication: GASTROOESOPHAGEAL CANCER
     Dosage: 600 MILLIGRAM
     Route: 042
     Dates: start: 20191023, end: 20200415
  2. AVELUMAB [Suspect]
     Active Substance: AVELUMAB
     Dosage: 600 MILLIGRAM
     Route: 042
     Dates: start: 20200415, end: 20200415
  3. AVELUMAB [Concomitant]
     Active Substance: AVELUMAB
     Indication: GASTROOESOPHAGEAL CANCER
     Dosage: 600 MILLIGRAM
     Route: 042
     Dates: start: 20191023, end: 20200415
  4. DOCETAXEL. [Suspect]
     Active Substance: DOCETAXEL
     Indication: GASTROOESOPHAGEAL CANCER
     Dosage: 80 MILLIGRAM
     Route: 042
     Dates: start: 20191023, end: 20200415
  5. OXALIPLATIN. [Suspect]
     Active Substance: OXALIPLATIN
     Indication: GASTROOESOPHAGEAL CANCER
     Dosage: 136 MILLIGRAM
     Route: 042
     Dates: start: 20191023, end: 20200415
  6. 5 FU [Suspect]
     Active Substance: FLUOROURACIL
     Indication: GASTROOESOPHAGEAL CANCER
     Dosage: 4160 MILLIGRAM
     Route: 042
     Dates: start: 20191023, end: 20200415
  7. CONDROSAN [Concomitant]
     Indication: PAIN PROPHYLAXIS
     Dosage: UNK
     Route: 065
  8. CONDROSAN [Concomitant]
     Dosage: 2 DOSAGE FORM
     Route: 065
  9. CONDROSAN [Concomitant]
     Indication: PAIN PROPHYLAXIS
     Dosage: 2 DOSAGE FORM
     Route: 065
  10. PANTOPRAZOLE [Concomitant]
     Active Substance: PANTOPRAZOLE
     Indication: PROPHYLAXIS
     Dosage: 1 DOSAGE FORM
     Route: 065
  11. LEUCOVORIN. [Suspect]
     Active Substance: LEUCOVORIN
     Indication: GASTROOESOPHAGEAL CANCER
     Dosage: 320 MILLIGRAM
     Route: 042
     Dates: start: 20191023, end: 20200415
  12. RAMIPRIL. [Concomitant]
     Active Substance: RAMIPRIL
     Indication: HYPERTENSION
     Dosage: 2.5 MILLIGRAM
     Route: 065

REACTIONS (3)
  - Pulmonary embolism [Not Recovered/Not Resolved]
  - Pneumonia [Not Recovered/Not Resolved]
  - Pyrexia [Recovered/Resolved]

NARRATIVE: CASE EVENT DATE: 20200415
